FAERS Safety Report 10170656 (Version 1)
Quarter: 2014Q2

REPORT INFORMATION
  Report Type: Spontaneous
  Country: US (occurrence: US)
  Receive Date: 20140514
  Receipt Date: 20140514
  Transmission Date: 20141212
  Serious: Yes (Hospitalization)
  Sender: FDA-Public Use
  Company Number: US-BEH-2014042404

PATIENT
  Sex: Female

DRUGS (1)
  1. ZEMAIRA [Suspect]

REACTIONS (5)
  - Infection [Unknown]
  - Cardiac disorder [Unknown]
  - Lung disorder [Unknown]
  - Loss of consciousness [Unknown]
  - Condition aggravated [Unknown]
